FAERS Safety Report 7291675-0 (Version None)
Quarter: 2011Q1

REPORT INFORMATION
  Report Type: 
  Country: None (occurrence: None)
  Receive Date: 20110202
  Receipt Date: 20110117
  Transmission Date: 20110831
  Serious: Yes (Death)
  Sender: FDA-Public Use
  Company Number: TR-ACCORD-008008

PATIENT
  Age: 4 Month
  Sex: Female

DRUGS (1)
  1. CLONAZEPAM [Suspect]
     Indication: MUSCLE SPASMS
     Dosage: 0.10-MG/KG-1.0DA / YS

REACTIONS (7)
  - BRADYCARDIA [None]
  - NODAL RHYTHM [None]
  - APNOEA [None]
  - SUDDEN INFANT DEATH SYNDROME [None]
  - MUSCULOSKELETAL STIFFNESS [None]
  - SINUS ARREST [None]
  - OXYGEN SATURATION DECREASED [None]
